FAERS Safety Report 8392824-3 (Version None)
Quarter: 2012Q1

REPORT INFORMATION
  Report Type: 
  Country: None (occurrence: None)
  Receive Date: 20120323
  Receipt Date: 20110330
  Transmission Date: 20120608
  Serious: Yes (Other)
  Sender: FDA-Public Use
  Company Number: 163-21880-11030300

PATIENT
  Age: 80 Year
  Sex: Female

DRUGS (2)
  1. REVLIMID [Suspect]
     Indication: MULTIPLE MYELOMA
     Dosage: 10 MG, DAILY FOR 3 WEEKS EVERY 28 DAYS, PO
     Route: 048
     Dates: start: 20101110
  2. ASPIRIN [Concomitant]

REACTIONS (1)
  - DEEP VEIN THROMBOSIS [None]
